FAERS Safety Report 6163221-6 (Version None)
Quarter: 2009Q2

REPORT INFORMATION
  Report Type: 
  Country: None (occurrence: None)
  Receive Date: 20090422
  Receipt Date: 20090414
  Transmission Date: 20091009
  Serious: Yes (Life-Threatening, Hospitalization)
  Sender: FDA-Public Use
  Company Number: GB-JNJFOC-20081005032

PATIENT
  Age: 53 Year
  Sex: Male
  Weight: 93.4 kg

DRUGS (10)
  1. REMICADE [Suspect]
     Indication: RHEUMATOID ARTHRITIS
     Route: 042
  2. HUMIRA [Suspect]
     Indication: RHEUMATOID ARTHRITIS
     Route: 058
  3. METHOTREXATE [Concomitant]
     Indication: RHEUMATOID ARTHRITIS
     Route: 048
  4. ASPIRIN [Concomitant]
  5. FOLIC ACID [Concomitant]
     Route: 048
  6. MEBEVERINE [Concomitant]
  7. OMEPRAZOLE SODIUM [Concomitant]
  8. LOSARTAN POTASSIUM [Concomitant]
  9. BISOPROLOL FUMARATE [Concomitant]
  10. TRAMADOL HCL [Concomitant]

REACTIONS (2)
  - BLADDER CANCER STAGE II [None]
  - HAEMATURIA [None]
